FAERS Safety Report 8118669-7 (Version None)
Quarter: 2011Q4

REPORT INFORMATION
  Report Type: 
  Country: None (occurrence: None)
  Receive Date: 20111227
  Receipt Date: 20111117
  Transmission Date: 20120403
  Serious: No
  Sender: FDA-Public Use
  Company Number: PHEH2011US07034

PATIENT
  Age: 22 Year
  Sex: Female

DRUGS (6)
  1. ETHINYLESTRADIOL W/NORETHINDRONE (ETHINYLESTRADIOL, NORETHISTERONE) [Concomitant]
  2. ZYRTEC [Suspect]
     Dosage: 10 MG, QD
  3. ALLEGRA [Concomitant]
  4. GILENYA [Suspect]
     Indication: MULTIPLE SCLEROSIS
  5. LOESTRIN 1.5/30 [Concomitant]
  6. VITAMIN D [Concomitant]

REACTIONS (2)
  - DRUG INTERACTION [None]
  - MENSTRUATION IRREGULAR [None]
